FAERS Safety Report 8305171-2 (Version None)
Quarter: 2012Q1

REPORT INFORMATION
  Report Type: 
  Country: None (occurrence: None)
  Receive Date: 20120326
  Receipt Date: 20110330
  Transmission Date: 20120608
  Serious: Yes (Hospitalization)
  Sender: FDA-Public Use
  Company Number: PHHY2011US08478

PATIENT
  Age: 53 Year
  Sex: Female

DRUGS (2)
  1. TASIGNA [Suspect]
     Indication: CHRONIC MYELOID LEUKAEMIA
     Dosage: 150 MG, BID, ORAL, 400 MG, BID, ORAL
     Route: 048
     Dates: start: 20101126
  2. TASIGNA [Suspect]
     Indication: CHRONIC MYELOID LEUKAEMIA
     Dosage: 150 MG, BID, ORAL, 400 MG, BID, ORAL
     Route: 048
     Dates: start: 20101214

REACTIONS (4)
  - ERYTHEMA [None]
  - RASH PRURITIC [None]
  - SWELLING [None]
  - SKIN BURNING SENSATION [None]
